FAERS Safety Report 8342772-X (Version None)
Quarter: 2012Q2

REPORT INFORMATION
  Report Type: 
  Country: None (occurrence: None)
  Receive Date: 20120503
  Receipt Date: 20120419
  Transmission Date: 20120825
  Serious: Yes (Hospitalization)
  Sender: FDA-Public Use
  Company Number: 2012040195

PATIENT
  Age: 73 Year
  Sex: Female

DRUGS (15)
  1. OMEPRAZOLE [Concomitant]
  2. ACETAMINOPHEN [Concomitant]
  3. AMOXICILLIN [Concomitant]
  4. TRANSTEC (BUPRENORPHIN) [Concomitant]
  5. METOJECT (METOTREXATE) [Concomitant]
  6. BUPREX (IBUPROFEN) [Concomitant]
  7. SIMVASTATIN [Concomitant]
  8. TORSEMIDE [Suspect]
     Indication: RESPIRATORY TRACT INFECTION
     Dosage: ORAL
     Route: 048
     Dates: end: 20110731
  9. ATACAND [Suspect]
     Indication: HYPERTENSION
     Dosage: ORAL
     Route: 048
     Dates: start: 20110201, end: 20110731
  10. LEDERFOLIN (FOLINIC ACID) [Concomitant]
  11. TARKA [Suspect]
     Indication: HYPERTENSION
     Dosage: ORAL
     Route: 048
     Dates: end: 20110731
  12. IBUPROFEN [Suspect]
     Indication: RESPIRATORY TRACT INFECTION
     Dosage: ORAL
     Route: 048
     Dates: start: 20110725, end: 20110730
  13. ATENOLOL [Concomitant]
  14. CLONAZEPAM [Concomitant]
  15. DUPHALAC [Concomitant]

REACTIONS (4)
  - HYPERKALAEMIA [None]
  - RENAL FAILURE ACUTE [None]
  - BRADYCARDIA [None]
  - CARDIAC MURMUR [None]
